FAERS Safety Report 7232521-0 (Version None)
Quarter: 2011Q1

REPORT INFORMATION
  Report Type: 
  Country: None (occurrence: None)
  Receive Date: 20110105
  Receipt Date: 20101229
  Transmission Date: 20110831
  Serious: Yes (Death)
  Sender: FDA-Public Use
  Company Number: DSA_44597_2010

PATIENT
  Sex: Female

DRUGS (2)
  1. HALDOL [Concomitant]
  2. XENAZINE [Suspect]
     Indication: PRODUCT USED FOR UNKNOWN INDICATION
     Dosage: 50 MG BID ORAL
     Route: 048

REACTIONS (1)
  - DEATH [None]
